FAERS Safety Report 24655148 (Version 2)
Quarter: 2024Q4

REPORT INFORMATION
  Report Type: Report from Study
  Country: ES (occurrence: ES)
  Receive Date: 20241123
  Receipt Date: 20241218
  Transmission Date: 20250115
  Serious: Yes (Death, Hospitalization)
  Sender: ABBVIE
  Company Number: ES-ABBVIE-6015941

PATIENT
  Age: 80 Year
  Sex: Female

DRUGS (2)
  1. CARBIDOPA\LEVODOPA [Suspect]
     Active Substance: CARBIDOPA\LEVODOPA
     Indication: Parkinson^s disease
     Route: 050
     Dates: start: 20150212
  2. CARBIDOPA\LEVODOPA [Suspect]
     Active Substance: CARBIDOPA\LEVODOPA

REACTIONS (1)
  - Respiratory tract infection [Fatal]

NARRATIVE: CASE EVENT DATE: 20241111
